FAERS Safety Report 8525281 (Version 3)
Quarter: 2013Q1

REPORT INFORMATION
  Report Type: Spontaneous
  Country: BE (occurrence: BE)
  Receive Date: 20120423
  Receipt Date: 20130327
  Transmission Date: 20140127
  Serious: Yes (Other)
  Sender: FDA-Public Use
  Company Number: PHHY2012BE033317

PATIENT
  Age: 79 Year
  Sex: Male

DRUGS (7)
  1. ACLASTA [Suspect]
     Indication: OSTEOPOROSIS
     Dosage: 5 MG, UNK
     Route: 042
     Dates: start: 20120312
  2. ACLASTA [Interacting]
     Dosage: 5 MG, UNK
     Route: 042
     Dates: start: 20130322
  3. MARCOUMAR [Interacting]
     Indication: ATRIAL FIBRILLATION
     Dosage: UNK UKN, UNK
  4. CALCIUM W/VITAMIN D NOS [Concomitant]
     Indication: OSTEOPOROSIS
     Dosage: UNK UKN, UNK
  5. COVERSYL [Concomitant]
     Indication: HYPERTENSION
     Dosage: UNK UKN, UNK
  6. TAMSULOSIN [Concomitant]
     Indication: BENIGN PROSTATIC HYPERPLASIA
     Dosage: UNK UKN, UNK
  7. EMCONCOR [Concomitant]
     Indication: ATRIAL FIBRILLATION
     Dosage: UNK UKN, UNK

REACTIONS (3)
  - Coagulopathy [Recovered/Resolved]
  - International normalised ratio increased [Recovered/Resolved]
  - Drug interaction [Recovered/Resolved]
